FAERS Safety Report 9250352 (Version 1)
Quarter: 2013Q1

REPORT INFORMATION
  Report Type: Spontaneous
  Country: US (occurrence: None)
  Receive Date: 20121114
  Receipt Date: 20121114
  Transmission Date: 20140127
  Serious: Yes (Hospitalization, Other)
  Sender: FDA-Public Use
  Company Number: A-US2012-63071

PATIENT
  Age: 53 Year
  Sex: Female

DRUGS (2)
  1. VENTAVIS [Suspect]
     Indication: PULMONARY ARTERIAL HYPERTENSION
     Dosage: UNK , RESPIRATORY ARTERIAL
     Dates: start: 20090127, end: 20110519
  2. REVATO (SILDENAFIL CITRATE) [Concomitant]

REACTIONS (2)
  - Pulmonary arterial hypertension [None]
  - Condition aggravated [None]
